FAERS Safety Report 16985696 (Version 3)
Quarter: 2020Q1

REPORT INFORMATION
  Report Type: Report from Study
  Country: DE (occurrence: DE)
  Receive Date: 20191101
  Receipt Date: 20200107
  Transmission Date: 20200409
  Serious: Yes (Hospitalization)
  Sender: FDA-Public Use
  Company Number: NVSC2019DE013530

PATIENT
  Age: 65 Year
  Sex: Male
  Weight: 102 kg

DRUGS (3)
  1. METOPROLOLSUCCINAT - 1 A PHARMA 95 MG RETARDTABLETTEN [Suspect]
     Active Substance: METOPROLOL SUCCINATE
     Dosage: 95 MG
     Route: 065
     Dates: start: 20180801, end: 20190817
  2. METOPROLOLSUCCINAT - 1 A PHARMA 95 MG RETARDTABLETTEN [Suspect]
     Active Substance: METOPROLOL SUCCINATE
     Dosage: UNK
     Route: 065
     Dates: start: 20190818
  3. PLACEBO [Suspect]
     Active Substance: UNSPECIFIED INGREDIENT
     Indication: CARDIAC FAILURE
     Dosage: UNK
     Route: 048
     Dates: start: 20190221, end: 20190805

REACTIONS (2)
  - Bradycardia [Recovered/Resolved]
  - Vertigo [Recovered/Resolved]

NARRATIVE: CASE EVENT DATE: 20190817
